FAERS Safety Report 9297632 (Version 2)
Quarter: 2013Q3

REPORT INFORMATION
  Report Type: Spontaneous
  Country: US (occurrence: US)
  Receive Date: 20130520
  Receipt Date: 20130719
  Transmission Date: 20140515
  Serious: Yes (Hospitalization, Other)
  Sender: FDA-Public Use
  Company Number: US-PFIZER INC-2013154431

PATIENT
  Age: 60 Year
  Sex: Female
  Weight: 59.86 kg

DRUGS (5)
  1. CLONAZEPAM [Suspect]
     Dosage: UNK
  2. EFFEXOR XR [Suspect]
     Indication: MAJOR DEPRESSION
     Dosage: 150 MG DAILY
     Dates: start: 199401
  3. EFFEXOR XR [Suspect]
     Indication: GENERALISED ANXIETY DISORDER
  4. VALIUM [Concomitant]
     Indication: ANXIETY
     Dosage: 10 MG DAILY
  5. SIMVASTATIN [Concomitant]
     Dosage: UNK

REACTIONS (2)
  - Suicide attempt [Unknown]
  - Intentional overdose [Unknown]
